FAERS Safety Report 9388738 (Version 1)
Quarter: 2013Q3

REPORT INFORMATION
  Report Type: Spontaneous
  Country: AU (occurrence: AU)
  Receive Date: 20130708
  Receipt Date: 20130708
  Transmission Date: 20140515
  Serious: Yes (Other)
  Sender: FDA-Public Use
  Company Number: AU-GLAXOSMITHKLINE-B0885929A

PATIENT
  Sex: Male

DRUGS (5)
  1. VOTRIENT [Suspect]
     Indication: LIVER FUNCTION TEST ABNORMAL
     Dosage: 800MG PER DAY
     Route: 065
     Dates: start: 20130312, end: 20130409
  2. ATACAND [Concomitant]
     Indication: HYPERTENSION
  3. DIAFORMIN [Concomitant]
     Indication: DIABETES MELLITUS
  4. DIAMICRON [Concomitant]
     Indication: DIABETES MELLITUS
  5. METFORMIN [Concomitant]
     Indication: DIABETES MELLITUS

REACTIONS (3)
  - Liver function test abnormal [Recovered/Resolved]
  - Thrombocytopenia [Recovered/Resolved]
  - Hepatic enzyme increased [Unknown]
